APPROVED DRUG PRODUCT: HYDERGINE LC
Active Ingredient: ERGOLOID MESYLATES
Strength: 1MG
Dosage Form/Route: CAPSULE;ORAL
Application: N018706 | Product #001
Applicant: NOVARTIS PHARMACEUTICALS CORP
Approved: Jan 18, 1983 | RLD: No | RS: No | Type: DISCN